FAERS Safety Report 18677413 (Version 1)
Quarter: 2020Q4

REPORT INFORMATION
  Report Type: Spontaneous
  Country: DE (occurrence: DE)
  Receive Date: 20201229
  Receipt Date: 20201229
  Transmission Date: 20210114
  Serious: Yes (Death, Hospitalization, Other)
  Sender: FDA-Public Use
  Company Number: DE-B.BRAUN MEDICAL INC.-2103579

PATIENT
  Age: 76 Year
  Sex: Female

DRUGS (6)
  1. HEPARIN SODIUM IN DEXTROSE [Suspect]
     Active Substance: HEPARIN SODIUM
  2. XELEVIA [Concomitant]
     Active Substance: SITAGLIPTIN PHOSPHATE
  3. APIXABAN [Concomitant]
     Active Substance: APIXABAN
  4. RAMIPRIL. [Concomitant]
     Active Substance: RAMIPRIL
  5. AMARYL [Concomitant]
     Active Substance: GLIMEPIRIDE
  6. GLIMEPIRIDE. [Concomitant]
     Active Substance: GLIMEPIRIDE

REACTIONS (6)
  - Bronchitis [Fatal]
  - Pneumonia aspiration [Fatal]
  - Epistaxis [Fatal]
  - Bronchial haemorrhage [Fatal]
  - Pulmonary oedema [Fatal]
  - Endotracheal intubation complication [Fatal]
